FAERS Safety Report 11074419 (Version 1)
Quarter: 2015Q2

REPORT INFORMATION
  Report Type: Spontaneous
  Country: US (occurrence: None)
  Receive Date: 20150428
  Receipt Date: 20150428
  Transmission Date: 20150821
  Serious: Yes (Other)
  Sender: FDA-Public Use
  Company Number: None

PATIENT
  Age: 50 Year
  Sex: Female
  Weight: 60.33 kg

DRUGS (2)
  1. TAMOXIFEN 20 MG [Suspect]
     Active Substance: TAMOXIFEN
     Indication: NEOPLASM MALIGNANT
     Dosage: 1 PILL
     Route: 048
     Dates: start: 20150406, end: 20150426
  2. TAMOXIFEN 20 MG [Suspect]
     Active Substance: TAMOXIFEN
     Indication: OVARIAN CANCER
     Dosage: 1 PILL
     Route: 048
     Dates: start: 20150406, end: 20150426

REACTIONS (3)
  - Muscle spasms [None]
  - Pain in extremity [None]
  - Bone pain [None]

NARRATIVE: CASE EVENT DATE: 20150426
